FAERS Safety Report 5939161-1 (Version None)
Quarter: 2008Q4

REPORT INFORMATION
  Report Type: 
  Country: None (occurrence: None)
  Receive Date: 20081103
  Receipt Date: 20081022
  Transmission Date: 20090506
  Serious: Yes (Hospitalization, Other)
  Sender: FDA-Public Use
  Company Number: US-PFIZER INC-2007076038

PATIENT
  Sex: Female

DRUGS (14)
  1. DILANTIN [Interacting]
     Indication: MIGRAINE
  2. DILANTIN [Interacting]
     Indication: HEADACHE
  3. DILANTIN [Interacting]
     Indication: CONVULSION
  4. LYRICA [Suspect]
     Indication: NEUROPATHY PERIPHERAL
     Dates: start: 20070905, end: 20070905
  5. OPHTHALMOLOGICALS [Interacting]
     Indication: CATARACT
  6. CORTICOSTEROIDS [Interacting]
     Indication: BACK DISORDER
  7. CARDENE [Concomitant]
  8. VITAMINS [Concomitant]
  9. ACETYLSALICYLIC ACID SRT [Concomitant]
  10. MULTI-VITAMINS [Concomitant]
  11. PREMARIN [Concomitant]
  12. NEXIUM [Concomitant]
  13. VALIUM [Concomitant]
  14. HYPNOTICS AND SEDATIVES [Concomitant]

REACTIONS (11)
  - ANTICONVULSANT DRUG LEVEL ABNORMAL [None]
  - BACK DISORDER [None]
  - CATARACT [None]
  - COGNITIVE DISORDER [None]
  - DRUG INTERACTION [None]
  - FEELING ABNORMAL [None]
  - HEADACHE [None]
  - HYPERTENSION [None]
  - HYPOAESTHESIA FACIAL [None]
  - MALAISE [None]
  - PALPITATIONS [None]
